FAERS Safety Report 6796225-0 (Version None)
Quarter: 2010Q2

REPORT INFORMATION
  Report Type: 
  Country: None (occurrence: None)
  Receive Date: 20100624
  Receipt Date: 20100624
  Transmission Date: 20101027
  Serious: Yes (Other)
  Sender: FDA-Public Use
  Company Number: None

PATIENT
  Age: 16 Year
  Sex: Female
  Weight: 60 kg

DRUGS (1)
  1. SOLODYN [Suspect]
     Indication: ACNE
     Dates: start: 20100101, end: 20100201

REACTIONS (2)
  - ARRHYTHMIA [None]
  - ELECTROCARDIOGRAM P WAVE ABNORMAL [None]
